FAERS Safety Report 20955810 (Version 1)
Quarter: 2022Q2

REPORT INFORMATION
  Report Type: Spontaneous
  Country: PT (occurrence: PT)
  Receive Date: 20220614
  Receipt Date: 20220614
  Transmission Date: 20220721
  Serious: Yes (Hospitalization)
  Sender: FDA-Public Use
  Company Number: PT-PHARMALEX-2022000570

PATIENT
  Age: 56 Year
  Sex: Male

DRUGS (5)
  1. METHOTREXATE [Suspect]
     Active Substance: METHOTREXATE
     Indication: Psoriasis
     Dosage: 15 MILLIGRAM, QW,15 MILLIGRAM PER WEEK
  2. BLEOMYCIN [Suspect]
     Active Substance: BLEOMYCIN SULFATE
     Indication: Hodgkin^s disease
     Dosage: UNK, CYCLE (AS A PART OF ABVD PROTOCOL  )
  3. ADRIAMYCIN [Suspect]
     Active Substance: DOXORUBICIN HYDROCHLORIDE
     Indication: Hodgkin^s disease
     Dosage: UNK, CYCLE (AS A PART OF ABVD PROTOCOL  )
  4. VINBLASTINE [Suspect]
     Active Substance: VINBLASTINE
     Indication: Hodgkin^s disease
     Dosage: UNK, CYCLE (AS A PART OF ABVD PROTOCOL  )
  5. DACARBAZINE [Suspect]
     Active Substance: DACARBAZINE
     Indication: Hodgkin^s disease
     Dosage: UNK, CYCLE (AS A PART OF ABVD PROTOCOL  )

REACTIONS (3)
  - Hodgkin^s disease [Recovered/Resolved]
  - Lymphoproliferative disorder [Recovered/Resolved]
  - Off label use [Unknown]
